FAERS Safety Report 7555411-2 (Version None)
Quarter: 2011Q2

REPORT INFORMATION
  Report Type: 
  Country: None (occurrence: None)
  Receive Date: 20110617
  Receipt Date: 20110602
  Transmission Date: 20111010
  Serious: No
  Sender: FDA-Public Use
  Company Number: US-B.I. PHARMACEUTICALS,INC./RIDGEFIELD-2011-BP-08691BP

PATIENT
  Age: 64 Year
  Sex: Male
  Weight: 97.07 kg

DRUGS (10)
  1. METFORMIN HCL [Concomitant]
     Indication: DIABETES MELLITUS
     Dosage: 2000 MG
  2. METOPROLOL TARTRATE [Concomitant]
     Indication: HYPERTENSION
     Dosage: 100 MG
     Dates: start: 19950101
  3. RAMIPRIL [Concomitant]
     Dates: start: 20101208
  4. PRADAXA [Suspect]
     Indication: ATRIAL FIBRILLATION
     Dosage: 300 MG
     Route: 048
     Dates: start: 20101208
  5. DIGOXIN [Suspect]
     Indication: ATRIAL FIBRILLATION
     Dosage: 0.25 MG
     Dates: start: 20101208
  6. METOPROLOL TARTRATE [Concomitant]
     Dosage: 50 MG
     Dates: start: 19950101
  7. JANUVIA [Concomitant]
     Indication: DIABETES MELLITUS
  8. GLYBURIDE [Concomitant]
     Indication: DIABETES MELLITUS
     Dosage: 10 MG
     Dates: start: 19950101
  9. CRESTOR [Concomitant]
     Indication: HYPERLIPIDAEMIA
     Dosage: 10 MG
     Dates: start: 20101208
  10. COSTAR [Concomitant]
     Indication: BLOOD CHOLESTEROL INCREASED

REACTIONS (1)
  - BLOOD GLUCOSE INCREASED [None]
